FAERS Safety Report 4410625-5 (Version None)
Quarter: 2004Q3

REPORT INFORMATION
  Report Type: 
  Country: None (occurrence: None)
  Receive Date: 20040726
  Receipt Date: 20040712
  Transmission Date: 20050211
  Serious: Yes (Hospitalization, Other)
  Sender: FDA-Public Use
  Company Number: 2004214380US

PATIENT
  Age: 67 Year
  Sex: Female

DRUGS (14)
  1. ZYVOX [Suspect]
     Indication: DRUG USE FOR UNKNOWN INDICATION
  2. PROCRIT (ERYTHROPOIETIN) [Suspect]
     Indication: ANAEMIA
     Dosage: 4000 IU, WEEKLY, SUBCUTANEOUS
     Route: 058
     Dates: start: 20040301
  3. CIPRO [Concomitant]
  4. GLIPIZIDE [Concomitant]
  5. ACCUPRIL [Concomitant]
  6. ATENOLOL [Concomitant]
  7. OMEPRAZOLE [Concomitant]
  8. NORTRIPTYLINE (NORTRIPTYLINE) [Concomitant]
  9. DEPAKOATE (VALPROATE SEMISODIUM) [Concomitant]
  10. ZOCOR [Concomitant]
  11. MINOCYCLINE HCL [Concomitant]
  12. NITRO PATCH [Concomitant]
  13. HYDROCHLOROTHIAZIDE [Concomitant]
  14. NPH INSULIN [Concomitant]

REACTIONS (7)
  - ANAEMIA [None]
  - OEDEMA PERIPHERAL [None]
  - PLATELET COUNT INCREASED [None]
  - PSEUDOMONAL BACTERAEMIA [None]
  - ROTATOR CUFF SYNDROME [None]
  - THROMBOCYTOPENIA [None]
  - WHITE BLOOD CELL COUNT INCREASED [None]
